FAERS Safety Report 5412875-8 (Version None)
Quarter: 2007Q3

REPORT INFORMATION
  Report Type: 
  Country: None (occurrence: None)
  Receive Date: 20070713
  Receipt Date: 20070531
  Transmission Date: 20080115
  Serious: No
  Sender: FDA-Public Use
  Company Number: 2007SP002030

PATIENT
  Age: 66 Year
  Sex: Female

DRUGS (4)
  1. LUNESTA [Suspect]
     Indication: INSOMNIA
     Dosage: 2 MG;HS;ORAL, 3 MG;HS;ORAL
     Route: 048
     Dates: start: 20070301, end: 20070401
  2. LUNESTA [Suspect]
     Indication: INSOMNIA
     Dosage: 2 MG;HS;ORAL, 3 MG;HS;ORAL
     Route: 048
     Dates: start: 20070401
  3. ANTIHYPERTENSIVES [Concomitant]
  4. CHOLESTEROL- AND TRIGLYCERIDE REDUCERS [Concomitant]

REACTIONS (5)
  - AGITATION [None]
  - DRUG INEFFECTIVE [None]
  - INITIAL INSOMNIA [None]
  - MOOD SWINGS [None]
  - NAUSEA [None]
